FAERS Safety Report 5165468-4 (Version None)
Quarter: 2006Q4

REPORT INFORMATION
  Report Type: 
  Country: None (occurrence: None)
  Receive Date: 20061206
  Receipt Date: 20061123
  Transmission Date: 20070319
  Serious: Yes (Other)
  Sender: FDA-Public Use
  Company Number: PHBS2006IT18409

PATIENT
  Age: 82 Year
  Sex: Female

DRUGS (3)
  1. ZOMETA [Suspect]
     Indication: METASTASES TO BONE
     Dosage: 4 MG, CYCLIC
     Route: 042
     Dates: start: 20040420, end: 20060125
  2. FEMARA [Concomitant]
     Dosage: 1 POSOLOGIC UNIT/D
     Route: 048
     Dates: start: 20040404, end: 20050506
  3. AROMASIN [Concomitant]
     Route: 048
     Dates: start: 20050601, end: 20061113

REACTIONS (2)
  - DENTAL EXAMINATION [None]
  - OSTEONECROSIS [None]
